FAERS Safety Report 21738234 (Version 2)
Quarter: 2022Q4

REPORT INFORMATION
  Report Type: Report from Study
  Country: US (occurrence: US)
  Receive Date: 20221216
  Receipt Date: 20221217
  Transmission Date: 20230113
  Serious: No
  Sender: FDA-Public Use
  Company Number: US-ABBVIE-4235626

PATIENT
  Sex: Female

DRUGS (1)
  1. HUMIRA [Suspect]
     Active Substance: ADALIMUMAB
     Indication: Uveitis
     Dosage: THE EVENT BLEEDING OF NAIL BED/BRUISE LIKE THERE WAS BLOOD UNDER NAIL BEDS ONSET DATE WAS AUG 202...
     Route: 058
     Dates: start: 202205

REACTIONS (5)
  - Uveitis [Recovering/Resolving]
  - Therapeutic product effect incomplete [Unknown]
  - Nail bed bleeding [Recovered/Resolved]
  - Contusion [Recovered/Resolved]
  - Joint stiffness [Unknown]
